FAERS Safety Report 20638035 (Version 5)
Quarter: 2024Q4

REPORT INFORMATION
  Report Type: Report from Study
  Country: US (occurrence: US)
  Receive Date: 20220325
  Receipt Date: 20241028
  Transmission Date: 20250115
  Serious: Yes (Hospitalization)
  Sender: TAKEDA
  Company Number: US-TAKEDA-US202025799

PATIENT
  Sex: Male

DRUGS (21)
  1. TEDUGLUTIDE [Suspect]
     Active Substance: TEDUGLUTIDE
     Indication: Short-bowel syndrome
     Dosage: 0.38 MILLILITER, QD
     Route: 058
     Dates: start: 20181019
  2. TEDUGLUTIDE [Suspect]
     Active Substance: TEDUGLUTIDE
     Indication: Short-bowel syndrome
     Dosage: 0.38 MILLILITER, QD
     Route: 058
     Dates: start: 20181019
  3. TEDUGLUTIDE [Suspect]
     Active Substance: TEDUGLUTIDE
     Indication: Short-bowel syndrome
     Dosage: 0.38 MILLILITER, QD
     Route: 058
     Dates: start: 20181019
  4. TEDUGLUTIDE [Suspect]
     Active Substance: TEDUGLUTIDE
     Indication: Short-bowel syndrome
     Dosage: 0.38 MILLILITER, QD
     Route: 058
     Dates: start: 20181019
  5. TEDUGLUTIDE [Suspect]
     Active Substance: TEDUGLUTIDE
     Indication: Deformity
     Dosage: 3.8 MILLIGRAM, QD
     Route: 058
     Dates: start: 201810
  6. TEDUGLUTIDE [Suspect]
     Active Substance: TEDUGLUTIDE
     Indication: Deformity
     Dosage: 3.8 MILLIGRAM, QD
     Route: 058
     Dates: start: 201810
  7. TEDUGLUTIDE [Suspect]
     Active Substance: TEDUGLUTIDE
     Indication: Deformity
     Dosage: 3.8 MILLIGRAM, QD
     Route: 058
     Dates: start: 201810
  8. TEDUGLUTIDE [Suspect]
     Active Substance: TEDUGLUTIDE
     Indication: Deformity
     Dosage: 3.8 MILLIGRAM, QD
     Route: 058
     Dates: start: 201810
  9. TEDUGLUTIDE [Suspect]
     Active Substance: TEDUGLUTIDE
     Indication: Crohn^s disease
     Dosage: 38 MILLIGRAM, QD
     Route: 058
     Dates: start: 202109
  10. TEDUGLUTIDE [Suspect]
     Active Substance: TEDUGLUTIDE
     Indication: Crohn^s disease
     Dosage: 38 MILLIGRAM, QD
     Route: 058
     Dates: start: 202109
  11. TEDUGLUTIDE [Suspect]
     Active Substance: TEDUGLUTIDE
     Indication: Crohn^s disease
     Dosage: 38 MILLIGRAM, QD
     Route: 058
     Dates: start: 202109
  12. TEDUGLUTIDE [Suspect]
     Active Substance: TEDUGLUTIDE
     Indication: Crohn^s disease
     Dosage: 38 MILLIGRAM, QD
     Route: 058
     Dates: start: 202109
  13. TEDUGLUTIDE [Suspect]
     Active Substance: TEDUGLUTIDE
     Indication: Fistula
     Dosage: 0.38 MILLILITER, QD
     Route: 058
  14. TEDUGLUTIDE [Suspect]
     Active Substance: TEDUGLUTIDE
     Indication: Fistula
     Dosage: 0.38 MILLILITER, QD
     Route: 058
  15. TEDUGLUTIDE [Suspect]
     Active Substance: TEDUGLUTIDE
     Indication: Fistula
     Dosage: 0.38 MILLILITER, QD
     Route: 058
  16. TEDUGLUTIDE [Suspect]
     Active Substance: TEDUGLUTIDE
     Indication: Fistula
     Dosage: 0.38 MILLILITER, QD
     Route: 058
  17. TEDUGLUTIDE [Suspect]
     Active Substance: TEDUGLUTIDE
     Indication: Enteritis
     Dosage: 0.38 MILLILITER, QD
     Route: 058
  18. TEDUGLUTIDE [Suspect]
     Active Substance: TEDUGLUTIDE
     Indication: Enteritis
     Dosage: 0.38 MILLILITER, QD
     Route: 058
  19. TEDUGLUTIDE [Suspect]
     Active Substance: TEDUGLUTIDE
     Indication: Enteritis
     Dosage: 0.38 MILLILITER, QD
     Route: 058
  20. TEDUGLUTIDE [Suspect]
     Active Substance: TEDUGLUTIDE
     Indication: Enteritis
     Dosage: 0.38 MILLILITER, QD
     Route: 058
  21. STELARA [Concomitant]
     Active Substance: USTEKINUMAB

REACTIONS (7)
  - Hospitalisation [Unknown]
  - Weight fluctuation [Unknown]
  - Gastrointestinal disorder [Unknown]
  - Syringe issue [Unknown]
  - Circumstance or information capable of leading to medication error [Unknown]
  - Flatulence [Unknown]
  - Abdominal pain [Recovering/Resolving]
